FAERS Safety Report 15794930 (Version 1)
Quarter: 2019Q1

REPORT INFORMATION
  Report Type: Spontaneous
  Country: US (occurrence: US)
  Receive Date: 20190107
  Receipt Date: 20190107
  Transmission Date: 20190417
  Serious: Yes (Death, Congenital Anomaly)
  Sender: FDA-Public Use
  Company Number: None

PATIENT
  Age: 12 Year
  Sex: Male
  Weight: 71.1 kg

DRUGS (6)
  1. MULTIVITAMIN ADULTS [Concomitant]
  2. OXYCODONE [Concomitant]
     Active Substance: OXYCODONE
  3. HYDROXYZINE [Concomitant]
     Active Substance: HYDROXYZINE HYDROCHLORIDE
  4. ALBUMIN [Suspect]
     Active Substance: ALBUMIN HUMAN
     Indication: MALIGNANT CONNECTIVE TISSUE NEOPLASM
     Dosage: ?          OTHER FREQUENCY:THREE TIMES WEEKLY;?
     Route: 042
     Dates: start: 20181119
  5. ALBUMIN [Suspect]
     Active Substance: ALBUMIN HUMAN
     Indication: SOFT TISSUE SARCOMA
     Dosage: ?          OTHER FREQUENCY:THREE TIMES WEEKLY;?
     Route: 042
     Dates: start: 20181119
  6. MORPHINE SULFATE ER [Concomitant]
     Active Substance: MORPHINE SULFATE

REACTIONS (1)
  - Death [None]
